FAERS Safety Report 6720227-3 (Version None)
Quarter: 2010Q2

REPORT INFORMATION
  Report Type: 
  Country: None (occurrence: None)
  Receive Date: 20100506
  Receipt Date: 20090916
  Transmission Date: 20101027
  Serious: Yes (Hospitalization)
  Sender: FDA-Public Use
  Company Number: CTI_01157_2010

PATIENT
  Sex: Female

DRUGS (1)
  1. FACTIVE [Suspect]
     Indication: SINUSITIS
     Dosage: (320 MG QD ORAL)
     Route: 048
     Dates: start: 20090313, end: 20090318

REACTIONS (6)
  - ANGIOEDEMA [None]
  - CACHEXIA [None]
  - HYPERSENSITIVITY [None]
  - MULTIPLE INJURIES [None]
  - PYREXIA [None]
  - RASH GENERALISED [None]
